FAERS Safety Report 7331053-9 (Version None)
Quarter: 2011Q1

REPORT INFORMATION
  Report Type: 
  Country: None (occurrence: None)
  Receive Date: 20110218
  Receipt Date: 20110211
  Transmission Date: 20110831
  Serious: Yes (Hospitalization)
  Sender: FDA-Public Use
  Company Number: 2010177136

PATIENT
  Age: 55 Year
  Sex: Female

DRUGS (8)
  1. ORAMORPH SR [Concomitant]
  2. INSULIN ASPART (INSULIN ASPART) [Concomitant]
  3. INSULIN GLARGINE (INSULINE GLARGINE) [Concomitant]
  4. ATORVASTATIN (ATORVASTATIN) [Concomitant]
  5. METFORMIN HCL [Concomitant]
  6. CITALOPRAM [Concomitant]
  7. DALTEPARIN SODIUM [Suspect]
     Indication: LUNG NEOPLASM MALIGNANT
     Dosage: 50 IU, SUBCUTANEOUS
     Route: 058
     Dates: start: 20101123
  8. OMEPRAZOLE [Concomitant]

REACTIONS (13)
  - BURNING SENSATION [None]
  - PNEUMONIA [None]
  - VOMITING [None]
  - HAEMATOCRIT DECREASED [None]
  - URINARY TRACT INFECTION [None]
  - PALLOR [None]
  - NEUTROPENIC SEPSIS [None]
  - DIARRHOEA [None]
  - CHOLECYSTITIS [None]
  - TACHYCARDIA [None]
  - HAEMOGLOBIN DECREASED [None]
  - PLATELET COUNT DECREASED [None]
  - HYPOTHERMIA [None]
